FAERS Safety Report 5512490-1 (Version None)
Quarter: 2007Q4

REPORT INFORMATION
  Report Type: 
  Country: None (occurrence: None)
  Receive Date: 20071112
  Receipt Date: 20070522
  Transmission Date: 20080405
  Serious: No
  Sender: FDA-Public Use
  Company Number: A0652354A

PATIENT
  Age: 58 Year
  Sex: Male

DRUGS (7)
  1. AVANDAMET [Suspect]
     Dosage: 1TAB TWICE PER DAY
     Route: 048
     Dates: start: 20061101
  2. AVANDIA [Suspect]
     Indication: DRUG USE FOR UNKNOWN INDICATION
     Route: 048
  3. ATENOLOL [Concomitant]
  4. INDAPAMIDE [Concomitant]
  5. ALTACE [Concomitant]
  6. TRILEPTAL [Concomitant]
  7. ZETIA [Concomitant]

REACTIONS (1)
  - CARDIAC DISORDER [None]
